FAERS Safety Report 8828683 (Version 1)
Quarter: 2012Q4

REPORT INFORMATION
  Report Type: Spontaneous
  Country: US (occurrence: None)
  Receive Date: 20121004
  Receipt Date: 20121004
  Transmission Date: 20130627
  Serious: Yes (Life-Threatening, Hospitalization)
  Sender: FDA-Public Use
  Company Number: CIO12019430

PATIENT
  Sex: Female

DRUGS (1)
  1. METAMUCIL [Suspect]
     Route: 048
     Dates: end: 20120909

REACTIONS (4)
  - Anaphylactic reaction [None]
  - Angioedema [None]
  - Obstructive airways disorder [None]
  - Dyspnoea [None]
